FAERS Safety Report 11005175 (Version 1)
Quarter: 2015Q2

REPORT INFORMATION
  Report Type: Spontaneous
  Country: US (occurrence: None)
  Receive Date: 20150408
  Receipt Date: 20150408
  Transmission Date: 20150821
  Serious: Yes (Hospitalization)
  Sender: FDA-Public Use
  Company Number: None

PATIENT
  Age: 48 Year
  Sex: Female

DRUGS (9)
  1. HCTZ [Concomitant]
     Active Substance: HYDROCHLOROTHIAZIDE
  2. SAVELLA [Concomitant]
     Active Substance: MILNACIPRAN HYDROCHLORIDE
  3. REMICADE [Suspect]
     Active Substance: INFLIXIMAB
     Indication: ANKYLOSING SPONDYLITIS
     Dates: start: 20130915, end: 20140131
  4. MELOXICAM. [Concomitant]
     Active Substance: MELOXICAM
  5. OMEPRAZOLE. [Concomitant]
     Active Substance: OMEPRAZOLE
  6. AMBEN [Concomitant]
  7. METAXALONE. [Concomitant]
     Active Substance: METAXALONE
  8. METHADONE [Concomitant]
     Active Substance: METHADONE HYDROCHLORIDE
  9. REMICADE [Suspect]
     Active Substance: INFLIXIMAB
     Indication: OBESITY
     Dates: start: 20130915, end: 20140131

REACTIONS (5)
  - Autoimmune hepatitis [None]
  - Cytomegalovirus test positive [None]
  - Confusional state [None]
  - Drug-induced liver injury [None]
  - Agitation [None]

NARRATIVE: CASE EVENT DATE: 20140211
